FAERS Safety Report 19883345 (Version 1)
Quarter: 2021Q3

REPORT INFORMATION
  Report Type: Spontaneous
  Country: CA (occurrence: CA)
  Receive Date: 20210926
  Receipt Date: 20210926
  Transmission Date: 20211014
  Serious: Yes (Other)
  Sender: FDA-Public Use
  Company Number: CA-ROCHE-2919877

PATIENT
  Age: 75 Year
  Sex: Female

DRUGS (1)
  1. RITUXIMAB. [Suspect]
     Active Substance: RITUXIMAB
     Indication: RHEUMATOID ARTHRITIS
     Route: 041

REACTIONS (5)
  - Muscular weakness [Unknown]
  - Polymyositis [Unknown]
  - Product use issue [Unknown]
  - Off label use [Unknown]
  - Arthritis [Unknown]
